FAERS Safety Report 6165700-4 (Version None)
Quarter: 2009Q2

REPORT INFORMATION
  Report Type: 
  Country: None (occurrence: None)
  Receive Date: 20090423
  Receipt Date: 20090316
  Transmission Date: 20091009
  Serious: Yes (Other)
  Sender: FDA-Public Use
  Company Number: US-PFIZER INC-2009184729

PATIENT
  Sex: Female

DRUGS (2)
  1. CHANTIX [Suspect]
  2. NEURONTIN [Suspect]

REACTIONS (1)
  - MENTAL DISORDER [None]
